FAERS Safety Report 8102414-5 (Version None)
Quarter: 2012Q1

REPORT INFORMATION
  Report Type: 
  Country: None (occurrence: None)
  Receive Date: 20120131
  Receipt Date: 20120131
  Transmission Date: 20120608
  Serious: No
  Sender: FDA-Public Use
  Company Number: None

PATIENT
  Sex: Female
  Weight: 100 kg

DRUGS (4)
  1. DOXORUBICIN HCL [Suspect]
     Dosage: 480 MG
     Dates: end: 20101102
  2. NEULASTA [Suspect]
     Dosage: 24 MG
     Dates: end: 20101103
  3. TAXOL [Suspect]
     Dosage: 1920 MG
     Dates: end: 20110208
  4. CYCLOPHOSPHAMIDE [Suspect]
     Dosage: 4800 MG
     Dates: end: 20101102

REACTIONS (1)
  - EJECTION FRACTION DECREASED [None]
